FAERS Safety Report 13021592 (Version 1)
Quarter: 2016Q4

REPORT INFORMATION
  Report Type: Spontaneous
  Country: FR (occurrence: FR)
  Receive Date: 20161213
  Receipt Date: 20161213
  Transmission Date: 20170207
  Serious: Yes (Disabling)
  Sender: FDA-Public Use
  Company Number: FR-ROCHE-1866910

PATIENT
  Age: 77 Year
  Sex: Female

DRUGS (4)
  1. INIPOMP [Concomitant]
     Active Substance: PANTOPRAZOLE SODIUM
     Indication: PRODUCT USED FOR UNKNOWN INDICATION
     Dosage: UNK SINCE LONG TERM
     Route: 048
  2. PARACETAMOL [Concomitant]
     Active Substance: ACETAMINOPHEN
     Indication: PRODUCT USED FOR UNKNOWN INDICATION
     Dosage: UNK SINCE LONG TERM
     Route: 048
  3. LUCENTIS [Suspect]
     Active Substance: RANIBIZUMAB
     Indication: AGE-RELATED MACULAR DEGENERATION
     Dosage: 1ST INJECTION
     Route: 031
     Dates: start: 20160209, end: 20160209
  4. LUCENTIS [Suspect]
     Active Substance: RANIBIZUMAB
     Dosage: 2ND INJECTION
     Route: 031
     Dates: start: 20160308, end: 20160308

REACTIONS (2)
  - Rheumatic disorder [Recovering/Resolving]
  - Arthralgia [Recovering/Resolving]

NARRATIVE: CASE EVENT DATE: 20160210
